FAERS Safety Report 24341600 (Version 1)
Quarter: 2024Q3

REPORT INFORMATION
  Report Type: Spontaneous
  Country: US (occurrence: US)
  Receive Date: 20240920
  Receipt Date: 20240920
  Transmission Date: 20241016
  Serious: Yes (Hospitalization, Other)
  Sender: PIRAMAL
  Company Number: US-PIRAMAL PHARMA LIMITED-2024-PPL-000677

PATIENT

DRUGS (1)
  1. GABLOFEN [Suspect]
     Active Substance: BACLOFEN
     Indication: Muscle spasticity
     Dosage: UNK
     Route: 037

REACTIONS (2)
  - Urinary tract infection [Not Recovered/Not Resolved]
  - Meningitis bacterial [Unknown]
